FAERS Safety Report 9524710 (Version 1)
Quarter: 2013Q3

REPORT INFORMATION
  Report Type: Spontaneous
  Country: US (occurrence: None)
  Receive Date: 20130912
  Receipt Date: 20130912
  Transmission Date: 20140515
  Serious: Yes (Disabling, Other)
  Sender: FDA-Public Use
  Company Number: None

PATIENT
  Age: 58 Year
  Sex: Female
  Weight: 62.6 kg

DRUGS (13)
  1. PROLIA [Suspect]
     Indication: OSTEOPOROSIS
     Dosage: 60MG/ML SINGLE SHOT 2X /YEAR INJECTION (SC)?
     Route: 058
     Dates: start: 20130617, end: 20130617
  2. COPAXONE [Concomitant]
  3. TIZANIDINE HCL [Concomitant]
  4. NITROFURANTOIN [Concomitant]
  5. OXYBUTYNIN CHLORIDE ER [Concomitant]
  6. AMPYRA [Concomitant]
  7. EVENING PRIMROSE OIL [Concomitant]
  8. OMEGA 3 [Concomitant]
  9. COCONUT OIL [Concomitant]
  10. VITAMIN D [Concomitant]
  11. CALCIUM CITRATE 1200/MAGNESIUM [Concomitant]
  12. COLACE [Concomitant]
  13. MILK OF MAGNESIUM [Concomitant]

REACTIONS (5)
  - Muscular weakness [None]
  - Back pain [None]
  - Depression [None]
  - Mobility decreased [None]
  - Activities of daily living impaired [None]
